FAERS Safety Report 19478742 (Version 1)
Quarter: 2021Q2

REPORT INFORMATION
  Report Type: Spontaneous
  Country: US (occurrence: US)
  Receive Date: 20210630
  Receipt Date: 20210630
  Transmission Date: 20210717
  Serious: Yes (Hospitalization, Other)
  Sender: FDA-Public Use
  Company Number: US-PARATEK PHARMACEUTICALS, INC.-2021PTK00084

PATIENT
  Age: 35 Year
  Sex: Male
  Weight: 174.6 kg

DRUGS (5)
  1. BYSTOLIC [Concomitant]
     Active Substance: NEBIVOLOL HYDROCHLORIDE
  2. CLARITHROMYCIN. [Concomitant]
     Active Substance: CLARITHROMYCIN
  3. NUZYRA [Suspect]
     Active Substance: OMADACYCLINE
     Indication: ABSCESS BACTERIAL
     Dosage: 300 MG, 1X/DAY
     Route: 048
     Dates: start: 2021
  4. LOSARTAN. [Concomitant]
     Active Substance: LOSARTAN
  5. NUZYRA [Suspect]
     Active Substance: OMADACYCLINE
     Indication: SUBCUTANEOUS ABSCESS
     Dosage: 600 MG, 1X/DAY (^DOUBLE THE MAINTENANCE DOSE^)
     Route: 048
     Dates: start: 20210218, end: 2021

REACTIONS (8)
  - Dyspnoea [Recovering/Resolving]
  - Product dose omission issue [Recovered/Resolved]
  - Pulmonary oedema [Recovering/Resolving]
  - Mental status changes [Recovering/Resolving]
  - Cyanosis [Recovering/Resolving]
  - Off label use [Not Recovered/Not Resolved]
  - Pneumonia [Recovering/Resolving]
  - Lethargy [Recovering/Resolving]

NARRATIVE: CASE EVENT DATE: 20210218
